FAERS Safety Report 5533211-2 (Version None)
Quarter: 2007Q4

REPORT INFORMATION
  Report Type: 
  Country: None (occurrence: None)
  Receive Date: 20071204
  Receipt Date: 20071128
  Transmission Date: 20080405
  Serious: Yes (Death)
  Sender: FDA-Public Use
  Company Number: JP-MERCK-0711USA02734

PATIENT
  Age: 79 Year
  Sex: Male

DRUGS (2)
  1. STROMECTOL [Suspect]
     Indication: ACARODERMATITIS
     Route: 048
     Dates: start: 20071109, end: 20071109
  2. EURAX [Concomitant]
     Indication: ACARODERMATITIS
     Route: 061
     Dates: start: 20071109, end: 20071109

REACTIONS (1)
  - CARDIAC FAILURE [None]
